FAERS Safety Report 15060314 (Version 1)
Quarter: 2018Q2

REPORT INFORMATION
  Report Type: Spontaneous
  Country: US (occurrence: US)
  Receive Date: 20180605
  Receipt Date: 20180605
  Transmission Date: 20180711
  Serious: No
  Sender: FDA-Public Use
  Company Number: None

PATIENT

DRUGS (1)
  1. ULTRAM [Suspect]
     Active Substance: TRAMADOL HYDROCHLORIDE

REACTIONS (5)
  - Throat irritation [None]
  - Abdominal pain [None]
  - Odynophagia [None]
  - Rash [None]
  - Wrong technique in product usage process [None]
